FAERS Safety Report 6633961-0 (Version None)
Quarter: 2010Q1

REPORT INFORMATION
  Report Type: 
  Country: None (occurrence: None)
  Receive Date: 20100315
  Receipt Date: 20100305
  Transmission Date: 20100710
  Serious: Yes (Hospitalization)
  Sender: FDA-Public Use
  Company Number: US-ASTRAZENECA-2010SE09753

PATIENT
  Age: 62 Year
  Sex: Female

DRUGS (13)
  1. CRESTOR [Suspect]
     Route: 048
  2. ASPIRIN [Concomitant]
     Route: 065
  3. SINUS WASH [Concomitant]
     Route: 065
  4. COREG [Concomitant]
     Route: 065
  5. DILANTIN [Concomitant]
     Route: 065
  6. LIDODERM [Concomitant]
     Route: 065
  7. OMNARIS [Concomitant]
     Route: 065
  8. PINTASA [Concomitant]
     Route: 065
  9. TIGAN [Concomitant]
     Route: 065
  10. VICODIN HP [Concomitant]
     Route: 065
  11. XOPENEX [Concomitant]
     Route: 065
  12. ZANTAC [Concomitant]
     Route: 065
  13. ZYRTEC [Concomitant]
     Route: 065

REACTIONS (2)
  - GASTROINTESTINAL SURGERY [None]
  - RHABDOMYOLYSIS [None]
